FAERS Safety Report 20437579 (Version 1)
Quarter: 2022Q1

REPORT INFORMATION
  Report Type: Spontaneous
  Country: US (occurrence: US)
  Receive Date: 20220207
  Receipt Date: 20220207
  Transmission Date: 20220423
  Serious: Yes (Life-Threatening, Other)
  Sender: FDA-Public Use
  Company Number: US-Glaxosmithkline-US2022AMR020494

PATIENT
  Age: 63 Year
  Sex: Male
  Weight: 117 kg

DRUGS (1)
  1. SOTROVIMAB [Suspect]
     Active Substance: SOTROVIMAB
     Indication: COVID-19
     Dosage: UNK,500 MG, 500 MG/8 ML, 82.5 MG/ML, ONE TIME DOSE
     Route: 042
     Dates: start: 20220203, end: 20220203

REACTIONS (5)
  - Unresponsive to stimuli [Unknown]
  - Blood pressure decreased [Unknown]
  - Pulse absent [Unknown]
  - Apnoeic attack [Unknown]
  - Presyncope [Unknown]

NARRATIVE: CASE EVENT DATE: 20220203
